FAERS Safety Report 22788462 (Version 3)
Quarter: 2025Q3

REPORT INFORMATION
  Report Type: Spontaneous
  Country: JP (occurrence: JP)
  Receive Date: 20230804
  Receipt Date: 20250711
  Transmission Date: 20251020
  Serious: Yes (Hospitalization)
  Sender: MERCK SHARP & DOHME LLC
  Company Number: JP-009507513-2308JPN001567

PATIENT
  Age: 55 Year
  Sex: Female

DRUGS (1)
  1. KEYTRUDA [Suspect]
     Active Substance: PEMBROLIZUMAB
     Indication: Colorectal cancer
     Route: 041

REACTIONS (4)
  - Duodenal stenosis [Recovered/Resolved]
  - Eating disorder [Unknown]
  - Gastrointestinal scarring [Recovered/Resolved]
  - Diarrhoea [Unknown]
